FAERS Safety Report 5289324-6 (Version None)
Quarter: 2007Q2

REPORT INFORMATION
  Report Type: 
  Country: None (occurrence: None)
  Receive Date: 20070404
  Receipt Date: 20070404
  Transmission Date: 20071010
  Serious: Yes (Other)
  Sender: FDA-Public Use
  Company Number: None

PATIENT
  Age: 22 Year
  Sex: Female
  Weight: 61.2356 kg

DRUGS (1)
  1. TYLOX [Suspect]
     Indication: PAIN
     Dates: start: 20070403, end: 20070403

REACTIONS (2)
  - DRUG EXPOSURE DURING PREGNANCY [None]
  - PALPITATIONS [None]
